FAERS Safety Report 6184955-3 (Version None)
Quarter: 2009Q2

REPORT INFORMATION
  Report Type: 
  Country: None (occurrence: None)
  Receive Date: 20090511
  Receipt Date: 20090120
  Transmission Date: 20091009
  Serious: No
  Sender: FDA-Public Use
  Company Number: A0764320A

PATIENT
  Age: 86 Year
  Sex: Male

DRUGS (12)
  1. COREG CR [Suspect]
     Indication: HYPERTENSION
     Dosage: 10MG PER DAY
     Route: 048
     Dates: start: 20090114
  2. FELODIPINE [Concomitant]
  3. ALLOPURINOL [Concomitant]
  4. OMEPRAZOLE [Concomitant]
  5. SULINDAC [Concomitant]
  6. FOLIC ACID [Concomitant]
  7. FUROSEMIDE [Concomitant]
  8. LOVASTATIN [Concomitant]
  9. ASCORBIC ACID [Concomitant]
  10. MULTI-VITAMIN [Concomitant]
  11. MILK OF MAGNESIA TAB [Concomitant]
  12. DULCOLAX [Concomitant]

REACTIONS (4)
  - CONSTIPATION [None]
  - DRUG INEFFECTIVE [None]
  - POLLAKIURIA [None]
  - URINE OUTPUT INCREASED [None]
